FAERS Safety Report 9835629 (Version 1)
Quarter: 2014Q1

REPORT INFORMATION
  Report Type: Spontaneous
  Country: US (occurrence: US)
  Receive Date: 20140122
  Receipt Date: 20140122
  Transmission Date: 20141002
  Serious: Yes (Other)
  Sender: FDA-Public Use
  Company Number: US-JNJFOC-20140108562

PATIENT
  Age: 56 Year
  Sex: Male

DRUGS (1)
  1. INVOKANA [Suspect]
     Indication: BLOOD GLUCOSE FLUCTUATION
     Dates: start: 20131121, end: 20131128

REACTIONS (5)
  - Weight decreased [Unknown]
  - Diarrhoea [Unknown]
  - Hypotension [Unknown]
  - Blood glucose fluctuation [Unknown]
  - Abdominal pain [Unknown]
